FAERS Safety Report 9478461 (Version 6)
Quarter: 2015Q2

REPORT INFORMATION
  Report Type: Report from Study
  Country: FR (occurrence: FR)
  Receive Date: 20130827
  Receipt Date: 20150610
  Transmission Date: 20150821
  Serious: Yes (Death, Life-Threatening, Hospitalization)
  Sender: FDA-Public Use
  Company Number: FR-PFIZER INC-2013241448

PATIENT
  Age: 23 Year
  Sex: Male
  Weight: 71 kg

DRUGS (2)
  1. CRIZOTINIB [Suspect]
     Active Substance: CRIZOTINIB
     Indication: CLEAR CELL SARCOMA OF SOFT TISSUE
     Dosage: 250 MG, 2X/DAY
     Route: 048
     Dates: start: 20130628, end: 20130802
  2. SUTENT [Suspect]
     Active Substance: SUNITINIB MALATE
     Indication: NEOPLASM PROGRESSION
     Dosage: 37.5 MG, 1X/DAY
     Route: 048
     Dates: start: 20130805, end: 20130816

REACTIONS (1)
  - Mediastinal haemorrhage [Fatal]

NARRATIVE: CASE EVENT DATE: 20130816
